FAERS Safety Report 9374110 (Version 1)
Quarter: 2013Q2

REPORT INFORMATION
  Report Type: Spontaneous
  Country: US (occurrence: US)
  Receive Date: 20130628
  Receipt Date: 20130628
  Transmission Date: 20140414
  Serious: No
  Sender: FDA-Public Use
  Company Number: US-BIOGENIDEC-2013BI056675

PATIENT
  Sex: Female

DRUGS (1)
  1. TYSABRI [Suspect]
     Indication: MULTIPLE SCLEROSIS
     Route: 042
     Dates: start: 20110128

REACTIONS (5)
  - Myalgia [Recovered/Resolved with Sequelae]
  - Toothache [Recovered/Resolved with Sequelae]
  - Bruxism [Not Recovered/Not Resolved]
  - Blood potassium decreased [Recovered/Resolved]
  - Infusion related reaction [Recovered/Resolved with Sequelae]
